FAERS Safety Report 6623052-7 (Version None)
Quarter: 2010Q1

REPORT INFORMATION
  Report Type: 
  Country: None (occurrence: None)
  Receive Date: 20100310
  Receipt Date: 20091209
  Transmission Date: 20100710
  Serious: No
  Sender: FDA-Public Use
  Company Number: US-BIOGENIDEC-2009BI040146

PATIENT
  Age: 54 Year
  Sex: Male

DRUGS (4)
  1. AVONEX [Suspect]
     Indication: MULTIPLE SCLEROSIS
     Route: 030
     Dates: start: 20021001
  2. AVONEX [Suspect]
     Route: 030
     Dates: start: 20030101, end: 20050101
  3. AVONEX [Suspect]
     Route: 030
     Dates: start: 20060101, end: 20090601
  4. AVONEX [Suspect]
     Route: 030
     Dates: start: 20090701

REACTIONS (1)
  - CENTRAL NERVOUS SYSTEM LESION [None]
